FAERS Safety Report 25396499 (Version 1)
Quarter: 2025Q2

REPORT INFORMATION
  Report Type: Spontaneous
  Country: US (occurrence: None)
  Receive Date: 20250603
  Receipt Date: 20250603
  Transmission Date: 20250717
  Serious: Yes (Other)
  Sender: FDA-CTU
  Company Number: None

PATIENT
  Age: 67 Year
  Sex: Female
  Weight: 51.2 kg

DRUGS (4)
  1. TERIPARATIDE [Suspect]
     Active Substance: TERIPARATIDE
     Indication: Osteoporosis
     Dosage: FREQUENCY : DAILY;?
     Route: 058
     Dates: start: 20250113, end: 20250530
  2. ASPIRIN [Concomitant]
     Active Substance: ASPIRIN
  3. EZETIMIBE [Concomitant]
     Active Substance: EZETIMIBE
  4. ROSUVASTATIN [Concomitant]
     Active Substance: ROSUVASTATIN

REACTIONS (2)
  - Pain in extremity [None]
  - Hypokalaemia [None]

NARRATIVE: CASE EVENT DATE: 20250528
